FAERS Safety Report 10066701 (Version 1)
Quarter: 2014Q2

REPORT INFORMATION
  Report Type: Spontaneous
  Country: US (occurrence: None)
  Receive Date: 20140401
  Receipt Date: 20140401
  Transmission Date: 20141212
  Serious: Yes (Hospitalization)
  Sender: FDA-Public Use
  Company Number: PHEH2013US024349

PATIENT
  Age: 84 Year
  Sex: Female

DRUGS (4)
  1. EXELON PATCH (RIVASTIGMINE) TRANS-THERAPEUTIC-SYSTEM [Suspect]
     Indication: DEMENTIA
     Route: 062
  2. METOPROLOL TARTRATE [Concomitant]
  3. CAPENT (COD-LIVER OIL, ERGOCALCIFEROL, RETINOL, ZINC OXIDE) [Concomitant]
  4. ROPINIROLE HCL (ROPINIROLE HYDROCHLORIDE) [Concomitant]

REACTIONS (2)
  - Urinary tract infection [None]
  - Confusional state [None]
